FAERS Safety Report 13158924 (Version 2)
Quarter: 2017Q2

REPORT INFORMATION
  Report Type: Spontaneous
  Country: US (occurrence: US)
  Receive Date: 20170127
  Receipt Date: 20170516
  Transmission Date: 20170830
  Serious: Yes (Other)
  Sender: FDA-Public Use
  Company Number: US-TEVA-732503USA

PATIENT
  Age: 52 Year
  Sex: Female
  Weight: 81.65 kg

DRUGS (3)
  1. VENLAFAXINE [Suspect]
     Active Substance: VENLAFAXINE HYDROCHLORIDE
     Indication: DEPRESSION
     Route: 048
     Dates: start: 20161223
  2. LISINOPRIL. [Suspect]
     Active Substance: LISINOPRIL
     Indication: HYPERTENSION
  3. IBUPROFEN. [Concomitant]
     Active Substance: IBUPROFEN
     Indication: BACK PAIN
     Route: 065

REACTIONS (21)
  - Hypertension [Unknown]
  - Poor quality sleep [Not Recovered/Not Resolved]
  - Fatigue [Recovered/Resolved]
  - Therapeutic response unexpected [Recovered/Resolved]
  - General physical condition abnormal [Not Recovered/Not Resolved]
  - Skin lesion [Unknown]
  - Therapeutic response increased [Unknown]
  - Blood pressure decreased [Recovered/Resolved]
  - Blood pressure decreased [Unknown]
  - Somnolence [Recovered/Resolved]
  - Petechiae [Unknown]
  - Dry mouth [Recovering/Resolving]
  - Palpitations [Unknown]
  - Cardiovascular disorder [Unknown]
  - Peripheral coldness [Not Recovered/Not Resolved]
  - Intentional product misuse [Not Recovered/Not Resolved]
  - Intentional product misuse [Unknown]
  - Therapeutic response unexpected [Not Recovered/Not Resolved]
  - Medication error [Unknown]
  - Cardiac fibrillation [Recovered/Resolved]
  - Energy increased [Not Recovered/Not Resolved]

NARRATIVE: CASE EVENT DATE: 20161223
